FAERS Safety Report 9295565 (Version 1)
Quarter: 2013Q2

REPORT INFORMATION
  Report Type: Spontaneous
  Country: JP (occurrence: JP)
  Receive Date: 20130517
  Receipt Date: 20130517
  Transmission Date: 20140414
  Serious: Yes (Other)
  Sender: FDA-Public Use
  Company Number: JP-ACCORD-017598

PATIENT
  Age: 23 Year
  Sex: Male

DRUGS (3)
  1. ETOPOSIDE [Suspect]
     Indication: TESTICULAR GERM CELL TUMOUR MIXED STAGE II
     Dosage: RECEIVED TWO COURSES
  2. IFOSFAMIDE [Suspect]
     Indication: TESTICULAR GERM CELL TUMOUR MIXED STAGE II
     Dosage: RECIEVD TWO COURSES
  3. CISPLATIN [Suspect]
     Indication: TESTICULAR GERM CELL TUMOUR MIXED STAGE II
     Dosage: RCEIEVD TWO COURSES

REACTIONS (3)
  - Pancytopenia [Unknown]
  - Nausea [Unknown]
  - Decreased appetite [Unknown]
